FAERS Safety Report 9373190 (Version 1)
Quarter: 2013Q2

REPORT INFORMATION
  Report Type: Spontaneous
  Country: PH (occurrence: PH)
  Receive Date: 20130627
  Receipt Date: 20130627
  Transmission Date: 20140414
  Serious: Yes (Other)
  Sender: FDA-Public Use
  Company Number: PH-009507513-1306PHL013375

PATIENT
  Sex: Female

DRUGS (2)
  1. JANUMET [Suspect]
     Dosage: 1 DF, QD
     Route: 048
  2. LIPITOR [Concomitant]

REACTIONS (3)
  - Renal disorder [Unknown]
  - Blood glucose fluctuation [Unknown]
  - Eye operation [Unknown]
